FAERS Safety Report 8474903 (Version 6)
Quarter: 2012Q4

REPORT INFORMATION
  Report Type: Spontaneous
  Country: NL (occurrence: None)
  Receive Date: 20120313
  Receipt Date: 20120831
  Transmission Date: 20130627
  Serious: Yes (Hospitalization)
  Sender: FDA-Public Use
  Company Number: 2012-1129

PATIENT
  Age: 72 Year
  Sex: Female

DRUGS (5)
  1. SOMATULINE DEPOT [Suspect]
     Indication: CARCINOID SYNDROME
     Dosage: 120 MG (120 MG, 1 IN 21 D), SUBCUTANEOUS
     Route: 058
     Dates: start: 20100831
  2. OCTREOTIDE ACETATE [Concomitant]
  3. SYMBICORT [Concomitant]
  4. PROPRANOLOL [Concomitant]
  5. NOSE SPRAY FOR ALLERGY (CETIRIZINE HYDROCHLORIDE) [Concomitant]

REACTIONS (17)
  - Pneumonia [None]
  - Malignant neoplasm progression [None]
  - Vomiting [None]
  - Constipation [None]
  - Nausea [None]
  - Weight decreased [None]
  - Hepatic cancer [None]
  - Malaise [None]
  - Agitation [None]
  - Feeling abnormal [None]
  - Hepatic pain [None]
  - Sinusitis [None]
  - Palpitations [None]
  - Dizziness [None]
  - Headache [None]
  - Hyperhidrosis [None]
  - Flank pain [None]
